FAERS Safety Report 7029487-5 (Version None)
Quarter: 2010Q4

REPORT INFORMATION
  Report Type: 
  Country: None (occurrence: None)
  Receive Date: 20101005
  Receipt Date: 20100928
  Transmission Date: 20110411
  Serious: Yes (Other)
  Sender: FDA-Public Use
  Company Number: US-AMGEN-QUU438925

PATIENT
  Sex: Female
  Weight: 118.9 kg

DRUGS (5)
  1. ARANESP [Suspect]
     Indication: ANAEMIA OF MALIGNANT DISEASE
     Dates: start: 20100428, end: 20100428
  2. PROCRIT [Suspect]
     Indication: ANAEMIA OF MALIGNANT DISEASE
     Route: 058
     Dates: start: 20100519, end: 20100917
  3. TAXOL [Suspect]
     Route: 042
     Dates: start: 20100330, end: 20100902
  4. CARBOPLATIN [Suspect]
     Route: 042
     Dates: start: 20100330, end: 20100902
  5. RADIATION THERAPY [Suspect]
     Dates: start: 20100428, end: 20100615

REACTIONS (1)
  - TRANSFUSION [None]
